FAERS Safety Report 5386072-9 (Version None)
Quarter: 2007Q3

REPORT INFORMATION
  Report Type: 
  Country: None (occurrence: None)
  Receive Date: 20070710
  Receipt Date: 20070625
  Transmission Date: 20080115
  Serious: Yes (Other)
  Sender: FDA-Public Use
  Company Number: 2007US-08279

PATIENT
  Sex: Female

DRUGS (2)
  1. ISOTRETINOIN [Suspect]
     Indication: ACNE CYSTIC
     Dosage: SEE IMAGE
     Route: 048
     Dates: start: 20061201, end: 20070501
  2. ISOTRETINOIN [Suspect]
     Indication: ACNE CYSTIC
     Dosage: SEE IMAGE
     Route: 048
     Dates: start: 20070501

REACTIONS (2)
  - PREGNANCY OF PARTNER [None]
  - TRANSMISSION OF DRUG VIA SEMEN [None]
